FAERS Safety Report 5123420-9 (Version None)
Quarter: 2006Q4

REPORT INFORMATION
  Report Type: 
  Country: None (occurrence: None)
  Receive Date: 20061005
  Receipt Date: 20060922
  Transmission Date: 20070319
  Serious: Yes (Other)
  Sender: FDA-Public Use
  Company Number: 2006117149

PATIENT
  Sex: Female

DRUGS (2)
  1. LYRICA [Suspect]
     Dosage: 300 MG (150 MG,2 IN 1 D), ORAL
     Route: 048
  2. AMITRIPTYLINE HCL [Suspect]

REACTIONS (4)
  - ENERGY INCREASED [None]
  - SPEECH DISORDER [None]
  - SWELLING [None]
  - TREMOR [None]
